FAERS Safety Report 18508604 (Version 2)
Quarter: 2021Q3

REPORT INFORMATION
  Report Type: Spontaneous
  Country: US (occurrence: US)
  Receive Date: 20201116
  Receipt Date: 20210810
  Transmission Date: 20211014
  Serious: Yes (Other)
  Sender: FDA-Public Use
  Company Number: US-SA-2020SA317112

PATIENT
  Age: 42 Year
  Sex: Female
  Weight: 24.67 kg

DRUGS (2)
  1. SUBOXONE [Concomitant]
     Active Substance: BUPRENORPHINE HYDROCHLORIDE\NALOXONE HYDROCHLORIDE
     Dosage: 1 DF, TID (8?2MG)
     Route: 060
     Dates: start: 20200317
  2. ZANTAC [Suspect]
     Active Substance: RANITIDINE HYDROCHLORIDE
     Dosage: UNK
     Dates: start: 2007, end: 2020

REACTIONS (6)
  - Anxiety [Unknown]
  - Breast cancer female [Unknown]
  - Nausea [Unknown]
  - Vomiting [Unknown]
  - Breast mass [Unknown]
  - Injury [Unknown]

NARRATIVE: CASE EVENT DATE: 201912
